FAERS Safety Report 6248946-6 (Version None)
Quarter: 2009Q2

REPORT INFORMATION
  Report Type: 
  Country: None (occurrence: None)
  Receive Date: 20090629
  Receipt Date: 20090626
  Transmission Date: 20091009
  Serious: Yes (Death, Hospitalization)
  Sender: FDA-Public Use
  Company Number: BR-ASTRAZENECA-2009UW17668

PATIENT
  Age: 76 Year
  Sex: Male

DRUGS (3)
  1. SEROQUEL [Suspect]
     Route: 048
     Dates: start: 20050101, end: 20090620
  2. METFORMIN HCL [Concomitant]
     Indication: DIABETES MELLITUS
  3. GLIMEPIRIDE [Concomitant]
     Indication: DIABETES MELLITUS

REACTIONS (1)
  - CEREBROVASCULAR ACCIDENT [None]
